FAERS Safety Report 9130340 (Version 1)
Quarter: 2013Q1

REPORT INFORMATION
  Report Type: Spontaneous
  Country: TH (occurrence: TH)
  Receive Date: 20130228
  Receipt Date: 20130228
  Transmission Date: 20140127
  Serious: Yes (Death)
  Sender: FDA-Public Use
  Company Number: TH-BAXTER-2013BAX007297

PATIENT
  Age: 71 Year
  Sex: Female

DRUGS (1)
  1. DIANEAL PD4 LOW CALCIUM WITH 1.5% DEXTROSE [Suspect]
     Indication: RENAL FAILURE CHRONIC
     Route: 033
     Dates: start: 20120823, end: 20130210

REACTIONS (1)
  - Cardiovascular disorder [Fatal]
